FAERS Safety Report 6112319-7 (Version None)
Quarter: 2009Q1

REPORT INFORMATION
  Report Type: 
  Country: None (occurrence: None)
  Receive Date: 20090311
  Receipt Date: 20090311
  Transmission Date: 20090719
  Serious: Yes (Life-Threatening)
  Sender: FDA-Public Use
  Company Number: None

PATIENT
  Sex: Male
  Weight: 97 kg

DRUGS (6)
  1. KENALOG-40 [Suspect]
     Indication: JUVENILE ARTHRITIS
     Dosage: 40 MG ONCE IN EACH KNEE INTRAARTICULAR
     Route: 014
     Dates: start: 20081121
  2. PLAQUENIL [Concomitant]
  3. MOBIC [Concomitant]
  4. METHOTREXATE [Concomitant]
  5. FOLIC ACID [Concomitant]
  6. ENBREL [Concomitant]

REACTIONS (6)
  - CHEST DISCOMFORT [None]
  - CHEST PAIN [None]
  - HICCUPS [None]
  - LIP SWELLING [None]
  - RASH ERYTHEMATOUS [None]
  - WHEEZING [None]
